FAERS Safety Report 4337594-0 (Version None)
Quarter: 2004Q2

REPORT INFORMATION
  Report Type: 
  Country: None (occurrence: None)
  Receive Date: 20040413
  Receipt Date: 20031114
  Transmission Date: 20050107
  Serious: No
  Sender: FDA-Public Use
  Company Number: US-GLAXOSMITHKLINE-A0439838A

PATIENT
  Age: 30 Year
  Sex: Female

DRUGS (5)
  1. DEXEDRINE [Suspect]
     Indication: ATTENTION DEFICIT/HYPERACTIVITY DISORDER
     Dosage: 5MG PER DAY
     Route: 048
     Dates: start: 20030601
  2. LITHIUM [Concomitant]
  3. ZOLOFT [Concomitant]
  4. DEPAKOTE [Concomitant]
  5. MULTI-VITAMIN [Concomitant]

REACTIONS (2)
  - AGGRESSION [None]
  - AGITATION [None]
